FAERS Safety Report 20832627 (Version 3)
Quarter: 2022Q2

REPORT INFORMATION
  Report Type: Spontaneous
  Country: SK (occurrence: SK)
  Receive Date: 20220516
  Receipt Date: 20220602
  Transmission Date: 20220720
  Serious: Yes (Death, Congenital Anomaly)
  Sender: FDA-Public Use
  Company Number: SK-INCYTE CORPORATION-2022IN004721

PATIENT
  Age: 48 Year
  Sex: Male
  Weight: 177 kg

DRUGS (2)
  1. PONATINIB [Suspect]
     Active Substance: PONATINIB
     Indication: Product used for unknown indication
     Dosage: 15 MILLIGRAM, QD
     Route: 064
     Dates: start: 20190524
  2. ASPIRIN [Concomitant]
     Active Substance: ASPIRIN
     Indication: Product used for unknown indication
     Dosage: 100 MILLIGRAM, QD
     Route: 064

REACTIONS (2)
  - Trisomy 13 [Fatal]
  - Foetal exposure during pregnancy [Unknown]

NARRATIVE: CASE EVENT DATE: 20211008
